FAERS Safety Report 9304956 (Version 1)
Quarter: 2013Q1

REPORT INFORMATION
  Report Type: Spontaneous
  Country: US (occurrence: None)
  Receive Date: 20130219
  Receipt Date: 20130219
  Transmission Date: 20140127
  Serious: Yes (Hospitalization)
  Sender: FDA-Public Use
  Company Number: AUR-APL-2013-01123

PATIENT
  Age: 67 Year
  Sex: Female

DRUGS (14)
  1. SIMVASTATIN (SIMVASTATIN) [Suspect]
     Indication: PRODUCT USED FOR UNKNOWN INDICATION
     Route: 048
  2. DOCETAXEL (DOCETAXEL) [Suspect]
     Indication: BREAST CANCER
     Route: 042
  3. CYCLOPHOSPHAMIDE (CYCLOPHOSPHAMIDE) [Concomitant]
  4. PEGFILGRASTIM (PEGFILGRASTIM) [Concomitant]
  5. DEXAMETHASONE (DEXAMETHASONE) [Concomitant]
  6. PALONOSETRON (PALONOSETRON) [Concomitant]
  7. APREPITANT (APREPITANT) [Concomitant]
  8. PROPAFENONE (PROPAFENONE) [Concomitant]
  9. HYDRALAZINE (HYDRALAZINE) [Concomitant]
  10. FUROSEMIDE (FUROSEMIDE) [Concomitant]
  11. FOLIC ACID (FOLIC ACID) [Concomitant]
  12. EZETIMIBE (EZETIMIBE) [Concomitant]
  13. METOPROLOL SUCCINATE (METOPROLOL SUCCINATE) [Concomitant]
  14. ASPIRIN (ACETYLSALICYLIC ACID) [Concomitant]

REACTIONS (6)
  - Atrial fibrillation [None]
  - Tachycardia [None]
  - Palpitations [None]
  - Dyspnoea [None]
  - Tremor [None]
  - Chest discomfort [None]
